FAERS Safety Report 8541863-8 (Version None)
Quarter: 2012Q3

REPORT INFORMATION
  Report Type: 
  Country: None (occurrence: None)
  Receive Date: 20120726
  Receipt Date: 20111018
  Transmission Date: 20120928
  Serious: No
  Sender: FDA-Public Use
  Company Number: US-ASTRAZENECA-2011SE55284

PATIENT
  Age: 29 Year
  Sex: Female
  Weight: 86.2 kg

DRUGS (8)
  1. SEROQUEL XR [Suspect]
     Indication: BIPOLAR DISORDER
     Route: 048
     Dates: start: 20110831, end: 20110801
  2. LITHIUM CARBONATE [Concomitant]
     Indication: DEPRESSION
  3. CLODIPINE [Concomitant]
     Indication: DEPRESSION
  4. SEROQUEL XR [Suspect]
     Indication: ANXIETY
     Route: 048
     Dates: start: 20110831, end: 20110801
  5. SEROQUEL XR [Suspect]
     Route: 048
     Dates: start: 20110101
  6. SEROQUEL XR [Suspect]
     Route: 048
     Dates: start: 20110801, end: 20110101
  7. SEROQUEL XR [Suspect]
     Route: 048
     Dates: start: 20110101
  8. SEROQUEL XR [Suspect]
     Route: 048
     Dates: start: 20110801, end: 20110101

REACTIONS (1)
  - LARYNGITIS [None]
